FAERS Safety Report 4705609-3 (Version None)
Quarter: 2005Q3

REPORT INFORMATION
  Report Type: 
  Country: None (occurrence: None)
  Receive Date: 20050701
  Receipt Date: 20050622
  Transmission Date: 20060218
  Serious: Yes (Hospitalization)
  Sender: FDA-Public Use
  Company Number: US-BOEHRINGER INGELHEIM PHARMACEUTICALS, INC.-2005-DE-02385GD

PATIENT
  Age: 30 Year
  Sex: Female

DRUGS (4)
  1. NEVIRAPINE [Suspect]
     Indication: HIV INFECTION
  2. COMBIVIR [Suspect]
     Indication: HIV INFECTION
  3. TRIMETHOPRIM-SULFAMETHOXAZOLE [Concomitant]
     Indication: INFECTION PROPHYLAXIS
  4. AZITHROMYCIN [Concomitant]
     Indication: ANTIBIOTIC PROPHYLAXIS

REACTIONS (3)
  - IMMUNE RECONSTITUTION SYNDROME [None]
  - MYCOBACTERIUM AVIUM COMPLEX IMMUNE RESTORATION DISEASE [None]
  - PNEUMONIA BACTERIAL [None]
